FAERS Safety Report 5914016-7 (Version None)
Quarter: 2008Q4

REPORT INFORMATION
  Report Type: 
  Country: None (occurrence: None)
  Receive Date: 20081009
  Receipt Date: 20081008
  Transmission Date: 20090506
  Serious: Yes (Hospitalization)
  Sender: FDA-Public Use
  Company Number: NL-BRISTOL-MYERS SQUIBB COMPANY-13816434

PATIENT
  Age: 78 Year
  Sex: Male
  Weight: 91 kg

DRUGS (9)
  1. CISPLATIN [Suspect]
     Indication: SMALL CELL LUNG CANCER LIMITED STAGE
     Route: 042
     Dates: start: 20070309, end: 20070309
  2. ALIMTA [Suspect]
     Indication: SMALL CELL LUNG CANCER LIMITED STAGE
     Route: 042
     Dates: start: 20070309, end: 20070309
  3. FOLIC ACID [Concomitant]
     Dates: start: 20070302
  4. VITAMIN B-12 [Concomitant]
     Dates: start: 20070302
  5. DEXAMETHASONE SODIUM PHOSPHATE [Concomitant]
     Dates: start: 20070209, end: 20070310
  6. ONDANSETRON [Concomitant]
     Indication: PROPHYLAXIS
     Dates: start: 20070309, end: 20070309
  7. APREPITANT [Concomitant]
     Indication: PROPHYLAXIS
     Dates: start: 20070309
  8. POTASSIUM CHLORIDE [Concomitant]
     Dates: start: 20070309, end: 20070309
  9. MAGNESIUM SULFATE [Concomitant]
     Dates: start: 20070309, end: 20070309

REACTIONS (2)
  - DIVERTICULITIS [None]
  - MALAISE [None]
